FAERS Safety Report 12892822 (Version 1)
Quarter: 2016Q4

REPORT INFORMATION
  Report Type: Spontaneous
  Country: US (occurrence: US)
  Receive Date: 20161028
  Receipt Date: 20161028
  Transmission Date: 20170207
  Serious: Yes (Other)
  Sender: FDA-Public Use
  Company Number: US-PFIZER INC-2016499931

PATIENT
  Sex: Female

DRUGS (1)
  1. LATANOPROST. [Suspect]
     Active Substance: LATANOPROST
     Dosage: 1 DROP IN EACH EYE, IN THE EVENING, FOR 4 DAYS)
     Route: 047
     Dates: start: 20161021

REACTIONS (6)
  - Eye pruritus [Unknown]
  - Vision blurred [Unknown]
  - Eye irritation [Unknown]
  - Eye pain [Unknown]
  - Visual acuity reduced [Unknown]
  - Ocular hyperaemia [Unknown]

NARRATIVE: CASE EVENT DATE: 20161025
